FAERS Safety Report 4344194-5 (Version None)
Quarter: 2004Q2

REPORT INFORMATION
  Report Type: 
  Country: None (occurrence: None)
  Receive Date: 20040419
  Receipt Date: 20040409
  Transmission Date: 20050107
  Serious: Yes (Other)
  Sender: FDA-Public Use
  Company Number: STA-AE-04-MTX-152

PATIENT
  Age: 78 Year
  Sex: Female

DRUGS (8)
  1. METHOTREXATE [Suspect]
     Indication: RHEUMATOID ARTHRITIS
     Dosage: 17.5 MG 1X PER 1 WK, ORAL
     Route: 048
     Dates: start: 20010101, end: 20031001
  2. FOLIC ACID [Concomitant]
  3. FOSAMAX [Concomitant]
  4. LOSARTAN (LOSARTAN) [Concomitant]
  5. DIGOXIN [Concomitant]
  6. METOPROLOL (METOPROLOL) [Concomitant]
  7. SIMVASTATIN [Concomitant]
  8. AMITRIPTYLINE HCL [Concomitant]

REACTIONS (2)
  - ALVEOLITIS [None]
  - LUNG DISORDER [None]
